FAERS Safety Report 15330001 (Version 2)
Quarter: 2018Q3

REPORT INFORMATION
  Report Type: Report from Study
  Country: CA (occurrence: CA)
  Receive Date: 20180829
  Receipt Date: 20180924
  Transmission Date: 20181010
  Serious: Yes (Other)
  Sender: FDA-Public Use
  Company Number: CA-BRISTOL-MYERS SQUIBB COMPANY-BMS-2018-077880

PATIENT
  Age: 69 Year
  Sex: Female

DRUGS (1)
  1. ABATACEPT [Suspect]
     Active Substance: ABATACEPT
     Indication: PRODUCT USED FOR UNKNOWN INDICATION
     Dosage: 750 MG, UNK
     Route: 042

REACTIONS (9)
  - Contusion [Unknown]
  - Laceration [Unknown]
  - Coordination abnormal [Unknown]
  - Dental caries [Recovered/Resolved]
  - Multiple sclerosis [Unknown]
  - Fall [Recovering/Resolving]
  - Gait disturbance [Unknown]
  - Pain [Unknown]
  - Vascular access complication [Unknown]

NARRATIVE: CASE EVENT DATE: 20180730
